FAERS Safety Report 22142472 (Version 1)
Quarter: 2023Q1

REPORT INFORMATION
  Report Type: Spontaneous
  Country: US (occurrence: US)
  Receive Date: 20230327
  Receipt Date: 20230327
  Transmission Date: 20230417
  Serious: Yes (Other)
  Sender: FDA-Public Use
  Company Number: US-PFIZER INC-202300127046

PATIENT
  Age: 65 Year
  Sex: Female

DRUGS (8)
  1. GEMCITABINE HYDROCHLORIDE [Suspect]
     Active Substance: GEMCITABINE HYDROCHLORIDE
     Indication: Breast cancer metastatic
     Dosage: UNK, CYCLIC (2ON/1 OFF)
     Dates: start: 20220623
  2. GEMCITABINE HYDROCHLORIDE [Suspect]
     Active Substance: GEMCITABINE HYDROCHLORIDE
     Dosage: UNK, CYCLIC (Q 3 WEEKS W/OUT DAY#8)
     Dates: end: 20220901
  3. GEMCITABINE HYDROCHLORIDE [Suspect]
     Active Substance: GEMCITABINE HYDROCHLORIDE
     Dosage: UNK, WEEKLY (QOW)
     Dates: start: 20221006
  4. GEMCITABINE HYDROCHLORIDE [Suspect]
     Active Substance: GEMCITABINE HYDROCHLORIDE
     Dosage: UNK, CYCLIC (Q 3 WEEKS)
     Dates: start: 20221110, end: 202302
  5. CARBOPLATIN [Suspect]
     Active Substance: CARBOPLATIN
     Indication: Breast cancer metastatic
     Dosage: UNK, CYCLIC (2ON/1 OFF)
     Dates: start: 20220623
  6. CARBOPLATIN [Suspect]
     Active Substance: CARBOPLATIN
     Dosage: CYCLIC (Q 3 WEEKS W/OUT DAY#8)
     Dates: end: 20220901
  7. CARBOPLATIN [Suspect]
     Active Substance: CARBOPLATIN
     Dosage: UNK, WEEKLY (QOW)
     Dates: start: 20221006
  8. CARBOPLATIN [Suspect]
     Active Substance: CARBOPLATIN
     Dosage: UNK, CYCLIC (Q 3 WEEKS)
     Dates: start: 20221110, end: 202302

REACTIONS (6)
  - Neutropenia [Unknown]
  - Thrombocytopenia [Unknown]
  - Neoplasm progression [Unknown]
  - Gastrooesophageal reflux disease [Unknown]
  - Back pain [Unknown]
  - Osteopenia [Unknown]

NARRATIVE: CASE EVENT DATE: 20220920
